FAERS Safety Report 18567808 (Version 1)
Quarter: 2020Q4

REPORT INFORMATION
  Report Type: Spontaneous
  Country: NO (occurrence: NO)
  Receive Date: 20201202
  Receipt Date: 20201202
  Transmission Date: 20210114
  Serious: Yes (Death, Hospitalization, Other)
  Sender: FDA-Public Use
  Company Number: NO-009507513-2011NOR015885

PATIENT
  Age: 70 Year
  Sex: Female

DRUGS (1)
  1. PEMBROLIZUMAB. [Suspect]
     Active Substance: PEMBROLIZUMAB
     Indication: METASTATIC MALIGNANT MELANOMA
     Dosage: 2 MG/KG EVERY 3 WEEKS

REACTIONS (7)
  - Diabetes mellitus [Unknown]
  - Vanishing bile duct syndrome [Fatal]
  - Immune-mediated arthritis [Unknown]
  - Immune-mediated hypothyroidism [Unknown]
  - Pleurisy [Unknown]
  - Dermatitis [Unknown]
  - Immune-mediated pneumonitis [Unknown]
